FAERS Safety Report 23196414 (Version 1)
Quarter: 2023Q4

REPORT INFORMATION
  Report Type: Other
  Country: None (occurrence: JP)
  Receive Date: 20231117
  Receipt Date: 20231117
  Transmission Date: 20240110
  Serious: Yes (Hospitalization, Other)
  Sender: FDA-Public Use
  Company Number: JP-ACI HealthCare Limited-2148398

PATIENT
  Age: 77 Year
  Sex: Female

DRUGS (2)
  1. DONEPEZIL HYDROCHLORIDE [Suspect]
     Active Substance: DONEPEZIL HYDROCHLORIDE
     Indication: Dementia Alzheimer^s type
     Route: 065
  2. CILOSTAZOL [Concomitant]
     Active Substance: CILOSTAZOL
     Route: 065

REACTIONS (6)
  - Respiratory rate increased [Not Recovered/Not Resolved]
  - Miosis [Not Recovered/Not Resolved]
  - Mydriasis [Not Recovered/Not Resolved]
  - Postural tremor [Recovered/Resolved]
  - Hypertension [Recovering/Resolving]
  - Accidental overdose [Unknown]
